FAERS Safety Report 7865396-7 (Version None)
Quarter: 2011Q4

REPORT INFORMATION
  Report Type: 
  Country: None (occurrence: None)
  Receive Date: 20111028
  Receipt Date: 20101213
  Transmission Date: 20120403
  Serious: No
  Sender: FDA-Public Use
  Company Number: US-GLAXOSMITHKLINE-A0899554A

PATIENT
  Age: 79 Year
  Sex: Female

DRUGS (9)
  1. LOVAZA [Concomitant]
  2. ICAPS VITAMIN + MINERAL SUPPLEMENT [Concomitant]
  3. PAIN RELIEVER [Concomitant]
     Indication: ARTHRITIS
  4. OMEPRAZOLE [Concomitant]
  5. PREMARIN [Concomitant]
  6. ADVAIR DISKUS 100/50 [Suspect]
     Indication: ASTHMA
     Dosage: 1PUFF TWICE PER DAY
     Route: 055
     Dates: start: 20080101
  7. OSTEO BIFLEX [Concomitant]
  8. FERRO SULFATE [Concomitant]
  9. CALCIUM CARBONATE [Concomitant]

REACTIONS (4)
  - DYSPNOEA [None]
  - DRUG INEFFECTIVE [None]
  - PRODUCT QUALITY ISSUE [None]
  - GENERAL PHYSICAL HEALTH DETERIORATION [None]
